FAERS Safety Report 4885687-1 (Version None)
Quarter: 2005Q4

REPORT INFORMATION
  Report Type: 
  Country: None (occurrence: None)
  Receive Date: 20051220
  Receipt Date: 20050422
  Transmission Date: 20060501
  Serious: Yes (Other)
  Sender: FDA-Public Use
  Company Number: HQWYE265125APR05

PATIENT
  Age: 42 Year
  Sex: Female
  Weight: 59.2 kg

DRUGS (5)
  1. EFFEXOR XR [Suspect]
     Indication: DEPRESSION
     Dosage: SEE IMAGE
     Route: 048
     Dates: start: 19980101, end: 20040101
  2. EFFEXOR XR [Suspect]
     Indication: DEPRESSION
     Dosage: SEE IMAGE
     Route: 048
     Dates: start: 20040101, end: 20041001
  3. EFFEXOR XR [Suspect]
     Indication: DEPRESSION
     Dosage: SEE IMAGE
     Route: 048
     Dates: start: 20050418
  4. KLONOPIN [Concomitant]
  5. VALIUM [Concomitant]

REACTIONS (6)
  - ANOREXIA [None]
  - DRUG WITHDRAWAL SYNDROME [None]
  - NAUSEA [None]
  - SUICIDAL IDEATION [None]
  - VISION BLURRED [None]
  - WEIGHT DECREASED [None]
